FAERS Safety Report 8905915 (Version 2)
Quarter: 2014Q3

REPORT INFORMATION
  Report Type: Spontaneous
  Country: US (occurrence: US)
  Receive Date: 20121109
  Receipt Date: 20140730
  Transmission Date: 20150326
  Serious: Yes (Other)
  Sender: FDA-Public Use
  Company Number: US-GLAXOSMITHKLINE-A0775457A

PATIENT
  Sex: Female

DRUGS (1)
  1. AVANDIA [Suspect]
     Active Substance: ROSIGLITAZONE MALEATE
     Indication: DIABETES MELLITUS
     Route: 048
     Dates: start: 20030730, end: 200612

REACTIONS (4)
  - Blindness [Unknown]
  - Macular oedema [Not Recovered/Not Resolved]
  - Cataract nuclear [Unknown]
  - Vision blurred [Unknown]
